FAERS Safety Report 8301383 (Version 3)
Quarter: 2013Q2

REPORT INFORMATION
  Report Type: Spontaneous
  Country: US (occurrence: US)
  Receive Date: 20111219
  Receipt Date: 20130521
  Transmission Date: 20140414
  Serious: No
  Sender: FDA-Public Use
  Company Number: US-ASTRAZENECA-2011SE62370

PATIENT
  Age: 66 Year
  Sex: Male
  Weight: 90.7 kg

DRUGS (9)
  1. CRESTOR [Suspect]
     Indication: BLOOD CHOLESTEROL INCREASED
     Route: 048
     Dates: start: 200911, end: 201106
  2. CRESTOR [Suspect]
     Indication: BLOOD CHOLESTEROL INCREASED
     Route: 048
     Dates: start: 201106
  3. CRESTOR [Suspect]
     Indication: BLOOD CHOLESTEROL INCREASED
     Route: 048
  4. CRESTOR [Suspect]
     Indication: BLOOD CHOLESTEROL INCREASED
     Dosage: GENERIC
     Route: 048
  5. LISINOPRIL [Suspect]
     Indication: HYPERTENSION
     Route: 048
  6. LISINOPRIL [Suspect]
     Indication: HYPERTENSION
     Route: 048
  7. VERAPAMIL [Concomitant]
     Indication: HYPERTENSION
  8. VIAGRA [Concomitant]
  9. ZOCOR [Concomitant]

REACTIONS (14)
  - Tenderness [Recovered/Resolved]
  - Ligament sprain [Unknown]
  - Weight increased [Unknown]
  - Abasia [Unknown]
  - Neck pain [Unknown]
  - Pain in extremity [Unknown]
  - Muscular weakness [Recovering/Resolving]
  - Constipation [Unknown]
  - Pain in extremity [Recovered/Resolved]
  - Pain in extremity [Unknown]
  - Myalgia [Unknown]
  - Middle insomnia [Unknown]
  - Intentional drug misuse [Unknown]
  - Off label use [Unknown]
